FAERS Safety Report 11187182 (Version 1)
Quarter: 2015Q2

REPORT INFORMATION
  Report Type: Spontaneous
  Country: US (occurrence: US)
  Receive Date: 20150615
  Receipt Date: 20150615
  Transmission Date: 20150821
  Serious: No
  Sender: FDA-Public Use
  Company Number: US-JNJFOC-20150507093

PATIENT
  Sex: Female
  Weight: 61.24 kg

DRUGS (4)
  1. ELMIRON [Suspect]
     Active Substance: PENTOSAN POLYSULFATE SODIUM
     Indication: CYSTITIS INTERSTITIAL
     Route: 048
     Dates: start: 201412, end: 201503
  2. ESTRACE [Concomitant]
     Active Substance: ESTRADIOL
     Indication: VAGINAL DISORDER
     Route: 061
     Dates: start: 2010
  3. ELMIRON [Suspect]
     Active Substance: PENTOSAN POLYSULFATE SODIUM
     Indication: CYSTITIS INTERSTITIAL
     Route: 048
     Dates: start: 201503
  4. TRAMADOL [Concomitant]
     Active Substance: TRAMADOL
     Indication: PAIN
     Route: 061

REACTIONS (2)
  - Pain [Unknown]
  - Treatment noncompliance [Unknown]

NARRATIVE: CASE EVENT DATE: 2015
